FAERS Safety Report 18340970 (Version 1)
Quarter: 2020Q4

REPORT INFORMATION
  Report Type: Spontaneous
  Country: US (occurrence: US)
  Receive Date: 20201003
  Receipt Date: 20201003
  Transmission Date: 20210113
  Serious: No
  Sender: FDA-Public Use
  Company Number: US-SA-2020SA269443

PATIENT

DRUGS (4)
  1. EUCRISA [Concomitant]
     Active Substance: CRISABOROLE
  2. ZYRTEC [Concomitant]
     Active Substance: CETIRIZINE HYDROCHLORIDE
  3. PREDNISONE. [Concomitant]
     Active Substance: PREDNISONE
  4. DUPIXENT [Suspect]
     Active Substance: DUPILUMAB
     Indication: PRODUCT USED FOR UNKNOWN INDICATION
     Dosage: 300 MG/2ML, QOW
     Dates: start: 20200615

REACTIONS (2)
  - Product use in unapproved indication [Unknown]
  - Oral herpes [Unknown]

NARRATIVE: CASE EVENT DATE: 20200615
